FAERS Safety Report 23334924 (Version 1)
Quarter: 2023Q4

REPORT INFORMATION
  Report Type: Report from Study
  Country: CO (occurrence: CO)
  Receive Date: 20231225
  Receipt Date: 20231225
  Transmission Date: 20240110
  Serious: Yes (Death, Hospitalization, Other)
  Sender: FDA-Public Use
  Company Number: CO-ABBVIE-5555574

PATIENT
  Age: 56 Year
  Sex: Male
  Weight: 50 kg

DRUGS (3)
  1. ZEMPLAR [Suspect]
     Active Substance: PARICALCITOL
     Indication: Chronic kidney disease
     Dosage: FORM STRENGTH: 5 MICROGRAM
     Route: 065
     Dates: start: 20160805, end: 20230717
  2. DIGESTAR [Concomitant]
     Indication: Constipation
     Dosage: UNKNOWN
     Route: 065
  3. ENSURE [Concomitant]
     Active Substance: AMINO ACIDS\DEXTROSE\ELECTROLYTES NOS\SOYBEAN OIL\VITAMINS
     Indication: Constipation
     Dosage: UNKNOWN
     Route: 065

REACTIONS (5)
  - Dialysis related complication [Unknown]
  - Myocardial infarction [Not Recovered/Not Resolved]
  - Underweight [Unknown]
  - Cardio-respiratory arrest [Fatal]
  - Musculoskeletal disorder [Not Recovered/Not Resolved]

NARRATIVE: CASE EVENT DATE: 20231202
